FAERS Safety Report 7418591-5 (Version None)
Quarter: 2011Q2

REPORT INFORMATION
  Report Type: 
  Country: None (occurrence: None)
  Receive Date: 20110407
  Receipt Date: 20110318
  Transmission Date: 20111010
  Serious: Yes (Death)
  Sender: FDA-Public Use
  Company Number: 1000019157

PATIENT
  Age: 86 Year
  Sex: Female

DRUGS (16)
  1. FORMATRIS(FORMOT'EROL FUMARATE)(FORMOTEROL FUMARATE) [Concomitant]
  2. TAVANIC (LEVOFLOXACIN) (LEVOFLOXACIN) [Concomitant]
  3. GABAPENTIN (GABAPENTIN) (GABAPENTIN) [Concomitant]
  4. GLURENORM (GLIQUIDONE) (GLIQUIDONE) [Concomitant]
  5. BUDES (BUDESONIDE)(BUDESONIDE) [Concomitant]
  6. TORSEMIDE (TORASEMIDE)('TORASEMIDE) [Concomitant]
  7. PREDNISOLONE [Concomitant]
  8. ROFLUMILAST (ROFLUMILAST) (500 MICROGRAM, TABLETS) [Suspect]
     Indication: CHRONIC OBSTRUCTIVE PULMONARY DISEASE
     Dosage: 500 MCG (500 MCG,1 IN 1 D), ORAL
     Route: 048
  9. ROFLUMILAST (ROFLUMILAST) (500 MICROGRAM, TABLETS) [Suspect]
     Indication: CONDITION AGGRAVATED
     Dosage: 500 MCG (500 MCG,1 IN 1 D), ORAL
     Route: 048
  10. ROFLUMILAST (ROFLUMILAST) (500 MICROGRAM, TABLETS) [Suspect]
     Indication: PNEUMONIA
     Dosage: 500 MCG (500 MCG,1 IN 1 D), ORAL
     Route: 048
  11. SPIRIVA (TIOTROPIUM BROMIDE) (TIOTROPIUM BROMIDE) [Concomitant]
  12. LISINOPRIL [Concomitant]
  13. PANTOPRAZOLE SODIUM [Concomitant]
  14. NEBIVOLOL (NEDIVOLOL HYDROCHLORIDE) (NEBIVOLOL HYDROCHLORIDE) [Concomitant]
  15. CLOPIDOGREL (CLOPIDOGREL) (CLOPIDOGREL) [Concomitant]
  16. CALCILAC KIT (CALCIUM CARBONATE, CHOLECALCIFEROL)(CALCIUM CARBONATE, C [Concomitant]

REACTIONS (1)
  - DEATH [None]
